FAERS Safety Report 5861492-4 (Version None)
Quarter: 2008Q3

REPORT INFORMATION
  Report Type: 
  Country: None (occurrence: None)
  Receive Date: 20080827
  Receipt Date: 20080530
  Transmission Date: 20090109
  Serious: No
  Sender: FDA-Public Use
  Company Number: US-ABBOTT-08P-163-0454285-00

PATIENT
  Sex: Female
  Weight: 74.456 kg

DRUGS (14)
  1. COATED PDS [Suspect]
     Indication: BLOOD CHOLESTEROL INCREASED
     Route: 048
  2. ATORVASTATIN CALCIUM [Concomitant]
     Indication: BLOOD CHOLESTEROL INCREASED
     Dosage: 40MG AT BEDTIME
     Route: 048
  3. OLMESARTAN MEDOXOMIL [Concomitant]
     Indication: HYPERTENSION
     Dosage: 20MG DAILY
     Route: 048
  4. NITROGLYCERIN [Concomitant]
     Indication: CARDIOVASCULAR DISORDER
     Dosage: 0.04MG PATCH DAILY
     Route: 062
  5. NITROGLYCERIN [Concomitant]
     Indication: ANGINA PECTORIS
     Route: 060
  6. CLOPIDOGREL [Concomitant]
     Indication: ANTICOAGULANT THERAPY
     Dosage: 75MG IN AM
     Route: 048
  7. LANSOPRAZOLE [Concomitant]
     Indication: GASTRIC ULCER
     Dosage: 30MG IN THE AM
     Route: 048
  8. DYAZIDE [Concomitant]
     Indication: FLUID RETENTION
     Dosage: 37.5/25MG DAILY
     Route: 048
  9. METHYLCELLULOSE [Concomitant]
     Indication: GASTROINTESTINAL DISORDER
     Route: 048
  10. FOLIC ACID [Concomitant]
     Indication: TRANSFUSION
     Dosage: 400MCG AT NIGHT
  11. MULTI-VITAMIN [Concomitant]
     Indication: DRUG USE FOR UNKNOWN INDICATION
     Dosage: 1 TAB IN THE MORNING
     Route: 048
  12. CALCIUM D3 [Concomitant]
     Indication: DRUG USE FOR UNKNOWN INDICATION
     Route: 048
  13. VITAMIN B COMPLEX CAP [Concomitant]
     Indication: TRANSFUSION
     Route: 048
  14. ASCORBIC ACID [Concomitant]
     Indication: DRUG USE FOR UNKNOWN INDICATION
     Route: 048

REACTIONS (1)
  - BURNING SENSATION [None]
